FAERS Safety Report 7740961-6 (Version None)
Quarter: 2011Q3

REPORT INFORMATION
  Report Type: 
  Country: None (occurrence: None)
  Receive Date: 20110909
  Receipt Date: 20110906
  Transmission Date: 20111222
  Serious: Yes (Disabling)
  Sender: FDA-Public Use
  Company Number: US-PFIZER INC-2011208679

PATIENT
  Sex: Male

DRUGS (1)
  1. CHAPSTICK CLASSIC [Suspect]
     Dosage: UNK
     Dates: start: 19600101

REACTIONS (2)
  - LIP INJURY [None]
  - ILL-DEFINED DISORDER [None]
